FAERS Safety Report 17402349 (Version 1)
Quarter: 2020Q1

REPORT INFORMATION
  Report Type: Spontaneous
  Country: US (occurrence: US)
  Receive Date: 20200127
  Receipt Date: 20200127
  Transmission Date: 20200409
  Serious: Yes (Hospitalization)
  Sender: FDA-Public Use
  Company Number: None

PATIENT
  Age: 79 Year
  Sex: Male

DRUGS (8)
  1. MULTI-VITAMIN [Concomitant]
     Active Substance: .ALPHA.-TOCOPHEROL ACETATE, DL-\ASCORBIC ACID\CYANOCOBALAMIN\FLUORIDE ION\FOLIC ACID\NIACIN\PYRIDOXINE\RIBOFLAVIN\THIAMINE\VITAMIN A\VITAMIN D
  2. PREDNISONE 10 MG [Concomitant]
     Active Substance: PREDNISONE
  3. SIMVASTATIN 10 MG [Concomitant]
     Active Substance: SIMVASTATIN
  4. ESBRIET [Suspect]
     Active Substance: PIRFENIDONE
     Indication: PULMONARY FIBROSIS
     Route: 048
     Dates: start: 20180105
  5. DOXAZOSIN 4 MG [Concomitant]
     Active Substance: DOXAZOSIN MESYLATE
  6. METOPROLOL TARTRATE 50 MG [Concomitant]
     Active Substance: METOPROLOL TARTRATE
  7. FINASTERIDE 5 MG [Concomitant]
     Active Substance: FINASTERIDE
  8. ALBUTEROL 2 MG [Concomitant]

REACTIONS (2)
  - Therapy cessation [None]
  - Hospitalisation [None]
